FAERS Safety Report 21939882 (Version 1)
Quarter: 2023Q1

REPORT INFORMATION
  Report Type: Report from Study
  Country: US (occurrence: US)
  Receive Date: 20230201
  Receipt Date: 20230201
  Transmission Date: 20230417
  Serious: No
  Sender: FDA-Public Use
  Company Number: US-EXELIXIS-CABO-22049025

PATIENT
  Sex: Female

DRUGS (1)
  1. CABOMETYX [Suspect]
     Active Substance: CABOZANTINIB S-MALATE
     Indication: Cervix carcinoma
     Dosage: 60 MG, QD
     Route: 048
     Dates: start: 202112

REACTIONS (5)
  - Unevaluable event [Unknown]
  - Gingival pain [Unknown]
  - Oral pain [Unknown]
  - Muscle spasms [Unknown]
  - Off label use [Unknown]
